FAERS Safety Report 7166972-X (Version None)
Quarter: 2010Q4

REPORT INFORMATION
  Report Type: 
  Country: None (occurrence: None)
  Receive Date: 20101213
  Receipt Date: 20101213
  Transmission Date: 20110411
  Serious: Yes (Other)
  Sender: FDA-Public Use
  Company Number: None

PATIENT
  Sex: Male
  Weight: 108.8633 kg

DRUGS (2)
  1. COLCRYS [Suspect]
     Indication: PEYRONIE'S DISEASE
     Dosage: 1 TABLET EVERYDAY PO
     Route: 048
     Dates: start: 20101210, end: 20101211
  2. MELOXICAM [Suspect]
     Indication: SPINAL DISORDER
     Dosage: 1 TABLET EVERY DAY PO
     Route: 048
     Dates: start: 20101129, end: 20101209

REACTIONS (1)
  - MUSCLE SPASMS [None]
